FAERS Safety Report 4679565-0 (Version None)
Quarter: 2005Q2

REPORT INFORMATION
  Report Type: 
  Country: None (occurrence: None)
  Receive Date: 20050602
  Receipt Date: 20050513
  Transmission Date: 20051028
  Serious: Yes (Death, Other)
  Sender: FDA-Public Use
  Company Number: 200514375GDDC

PATIENT
  Age: 76 Year
  Sex: Male

DRUGS (18)
  1. CLEXANE [Suspect]
     Dates: start: 20011230, end: 20011231
  2. HEPARIN SODIUM [Suspect]
     Dosage: DOSE: 850 U/HR
     Route: 042
     Dates: start: 20011228, end: 20011230
  3. PLAVIX [Suspect]
     Dates: start: 20011129, end: 20020111
  4. LOSEC [Suspect]
     Dates: start: 20011228, end: 20020112
  5. CLAFORAN [Concomitant]
     Indication: RESPIRATORY DISORDER
     Dates: start: 20020108, end: 20020112
  6. KONAKION [Concomitant]
     Route: 048
     Dates: start: 20020109, end: 20020111
  7. UREMIDE [Concomitant]
     Dates: start: 20011228, end: 20020112
  8. PEXSIG [Concomitant]
     Dates: start: 20011228, end: 20020112
  9. ASPIRIN [Concomitant]
  10. LIPITOR [Concomitant]
  11. MYLANTA [Concomitant]
  12. AUGMENTIN '125' [Concomitant]
  13. PRESSIN [Concomitant]
  14. ANGININE [Concomitant]
  15. FENTANYL [Concomitant]
  16. FERGON [Concomitant]
  17. RESONIUM [Concomitant]
  18. ISORDIL [Concomitant]
     Dates: start: 20011228, end: 20020112

REACTIONS (1)
  - THROMBOCYTOPENIA [None]
